FAERS Safety Report 8796371 (Version 1)
Quarter: 2012Q4

REPORT INFORMATION
  Report Type: 
  Country: US (occurrence: US)
  Receive Date: 20120919
  Receipt Date: 20120919
  Transmission Date: 20130627
  Serious: Yes (Other)
  Sender: FDA-Public Use
  Company Number: US-TEVA-359193USA

PATIENT
  Sex: Female

DRUGS (1)
  1. TAMOXIFEN [Suspect]
     Indication: BREAST CANCER
     Dosage: took for a total of 8 or 9 days
     Dates: end: 20120912

REACTIONS (4)
  - Multiple sclerosis [Recovering/Resolving]
  - Immobile [Recovering/Resolving]
  - Gait disturbance [Recovering/Resolving]
  - Activities of daily living impaired [Recovering/Resolving]
